FAERS Safety Report 8926591 (Version 1)
Quarter: 2012Q4

REPORT INFORMATION
  Report Type: 
  Country: US (occurrence: US)
  Receive Date: 20121127
  Receipt Date: 20121127
  Transmission Date: 20130627
  Serious: No
  Sender: FDA-Public Use
  Company Number: US-PFIZER INC-2012290130

PATIENT
  Sex: Female

DRUGS (4)
  1. ATORVASTATIN CALCIUM [Suspect]
     Dosage: UNK
  2. LIPITOR [Suspect]
     Dosage: UNK
  3. ATORVASTATIN [Suspect]
     Dosage: UNK
  4. ZETIA [Suspect]
     Dosage: UNK

REACTIONS (2)
  - Blood cholesterol abnormal [Unknown]
  - Drug ineffective [Unknown]
